FAERS Safety Report 7652990-1 (Version None)
Quarter: 2011Q3

REPORT INFORMATION
  Report Type: 
  Country: None (occurrence: None)
  Receive Date: 20110803
  Receipt Date: 20110801
  Transmission Date: 20111222
  Serious: Yes (Death, Other)
  Sender: FDA-Public Use
  Company Number: GB-PFIZER INC-2011175615

PATIENT
  Age: 52 Year
  Sex: Male

DRUGS (4)
  1. LANSOPRAZOL [Concomitant]
     Indication: DYSPEPSIA
     Dosage: 30 MG, 1X/DAY
  2. PROPRANOLOL [Concomitant]
     Indication: ANXIETY
     Dosage: 10 MG, 3X/DAY
  3. LYRICA [Suspect]
     Dosage: 25 MG, 3X/DAY
     Route: 048
     Dates: start: 20100917
  4. SERTRALINE [Concomitant]
     Indication: ANXIETY
     Dosage: 150 MG, UNK
     Route: 048

REACTIONS (1)
  - MYOCARDIAL INFARCTION [None]
